FAERS Safety Report 6599274-0 (Version None)
Quarter: 2010Q1

REPORT INFORMATION
  Report Type: 
  Country: None (occurrence: None)
  Receive Date: 20100224
  Receipt Date: 20100219
  Transmission Date: 20100710
  Serious: Yes (Other)
  Sender: FDA-Public Use
  Company Number: PHHY2009BR48341

PATIENT
  Age: 80 Year
  Sex: Male

DRUGS (6)
  1. EXELON [Suspect]
     Dosage: 9MG/5CM2
     Route: 062
     Dates: start: 20091001
  2. VENLIFT [Suspect]
     Indication: DEPRESSION
     Dosage: TWICE DAILY
  3. REMINYL ER (GALANTAMINE HYDROBROMIDE) [Concomitant]
     Dosage: 6MG ONCE DAILY
  4. MULTI-VITAMINS [Concomitant]
     Dosage: ONCE DAILY
  5. LEXOTAN [Concomitant]
     Indication: DEPRESSION
     Dosage: 6MG
  6. LEVOTHYROXINE SODIUM [Concomitant]
     Dosage: 75 MG, BID

REACTIONS (6)
  - APATHY [None]
  - ASTHENIA [None]
  - BLOOD PRESSURE FLUCTUATION [None]
  - BLOOD PRESSURE SYSTOLIC INCREASED [None]
  - CONFUSIONAL STATE [None]
  - HYPOTENSION [None]
